FAERS Safety Report 19518665 (Version 4)
Quarter: 2021Q3

REPORT INFORMATION
  Report Type: Spontaneous
  Country: US (occurrence: US)
  Receive Date: 20210712
  Receipt Date: 20210923
  Transmission Date: 20211014
  Serious: No
  Sender: FDA-Public Use
  Company Number: NVSC2021US146366

PATIENT
  Sex: Female

DRUGS (1)
  1. COSENTYX [Suspect]
     Active Substance: SECUKINUMAB
     Indication: PSORIATIC ARTHROPATHY
     Dosage: 150 MG, QMO (ONCE A MONTH)
     Route: 058

REACTIONS (5)
  - Hypoaesthesia [Unknown]
  - Joint swelling [Unknown]
  - Product dose omission issue [Unknown]
  - Peripheral swelling [Unknown]
  - Oropharyngeal pain [Unknown]
